FAERS Safety Report 23396676 (Version 1)
Quarter: 2024Q1

REPORT INFORMATION
  Report Type: Spontaneous
  Country: US (occurrence: None)
  Receive Date: 20240111
  Receipt Date: 20240111
  Transmission Date: 20240409
  Serious: No
  Sender: FDA-Public Use
  Company Number: None

PATIENT
  Age: 26 Year
  Sex: Female

DRUGS (1)
  1. HIZENTRA [Suspect]
     Active Substance: HUMAN IMMUNOGLOBULIN G
     Dosage: FREQUENCY : WEEKLY;?
     Route: 058

REACTIONS (7)
  - Dyspepsia [None]
  - Fatigue [None]
  - Nausea [None]
  - Vomiting [None]
  - Impaired work ability [None]
  - Infusion site reaction [None]
  - Asthenia [None]

NARRATIVE: CASE EVENT DATE: 20240104
